FAERS Safety Report 8376003-1 (Version None)
Quarter: 2012Q2

REPORT INFORMATION
  Report Type: 
  Country: None (occurrence: None)
  Receive Date: 20120522
  Receipt Date: 20120510
  Transmission Date: 20120825
  Serious: Yes (Life-Threatening, Hospitalization, Other)
  Sender: FDA-Public Use
  Company Number: PHHY2012RU041145

PATIENT
  Sex: Female

DRUGS (9)
  1. NILOTINIB [Suspect]
     Indication: CHRONIC MYELOID LEUKAEMIA
     Dosage: 800 MG, DAILY
     Route: 048
     Dates: start: 20100217, end: 20120510
  2. METIPRED [Concomitant]
  3. AMOXICILLIN AND CLAVULANATE POTASSIUM [Concomitant]
     Dosage: 12 MG, BID
     Route: 048
     Dates: start: 20120214
  4. PANANGIN [Concomitant]
     Dosage: 10 ML, DAILY
     Dates: start: 20120302, end: 20120323
  5. DEXAMETHASONE [Concomitant]
     Dosage: 8 MG, DAILY
     Route: 042
     Dates: start: 20120302, end: 20120323
  6. TRENTAL [Concomitant]
  7. NO TREATMENT RECEIVED [Suspect]
  8. BROMHEXINE [Concomitant]
     Dosage: 12 MG, BID
     Route: 048
     Dates: start: 20120214, end: 20120228
  9. WARFARIN SODIUM [Concomitant]
     Dosage: 3.75 MG, DAILY

REACTIONS (6)
  - PLEURISY [None]
  - RESPIRATORY FAILURE [None]
  - BRONCHOPNEUMONIA [None]
  - COUGH [None]
  - PULMONARY EMBOLISM [None]
  - DYSPNOEA EXERTIONAL [None]
